FAERS Safety Report 8475994-8 (Version None)
Quarter: 2012Q2

REPORT INFORMATION
  Report Type: 
  Country: None (occurrence: None)
  Receive Date: 20120628
  Receipt Date: 20120618
  Transmission Date: 20120825
  Serious: Yes (Hospitalization, Other)
  Sender: FDA-Public Use
  Company Number: US-MERCK-1111USA02490

PATIENT
  Age: 72 Year
  Sex: Female

DRUGS (7)
  1. FOSAMAX [Suspect]
     Indication: OSTEOPENIA
     Route: 048
     Dates: start: 20000225, end: 20030625
  2. RECLAST [Suspect]
     Route: 051
     Dates: start: 20081203, end: 20091219
  3. SIMVASTATIN [Concomitant]
     Indication: HYPERCHOLESTEROLAEMIA
     Route: 048
     Dates: start: 19910101
  4. FOSAMAX [Suspect]
     Route: 048
     Dates: start: 20051027, end: 20071205
  5. NORVASC [Concomitant]
     Indication: HYPERTENSION
     Route: 065
     Dates: start: 19910101
  6. SYNTHROID [Concomitant]
     Indication: THYROID DISORDER
     Route: 065
     Dates: start: 19910101
  7. BONIVA [Concomitant]
     Indication: OSTEOPENIA
     Route: 042
     Dates: start: 20071213, end: 20080903

REACTIONS (16)
  - MYOCARDIAL INFARCTION [None]
  - ORAL TORUS [None]
  - OSTEOARTHRITIS [None]
  - DENTAL CARIES [None]
  - PERIODONTAL DISEASE [None]
  - CATARACT [None]
  - EXOSTOSIS [None]
  - GINGIVAL INFECTION [None]
  - CEREBROVASCULAR ACCIDENT [None]
  - EXPOSED BONE IN JAW [None]
  - GINGIVAL BLEEDING [None]
  - OSTEONECROSIS OF JAW [None]
  - IMPAIRED HEALING [None]
  - ORAL DISORDER [None]
  - GASTRITIS [None]
  - FRACTURE [None]
